FAERS Safety Report 4477209-4 (Version None)
Quarter: 2004Q4

REPORT INFORMATION
  Report Type: 
  Country: None (occurrence: None)
  Receive Date: 20041018
  Receipt Date: 20041011
  Transmission Date: 20050328
  Serious: Yes (Death)
  Sender: FDA-Public Use
  Company Number: MY-MERCK-0410MYS00008

PATIENT
  Age: 57 Year
  Sex: Male

DRUGS (3)
  1. CELECOXIB [Concomitant]
     Indication: ARTHRALGIA
     Route: 048
     Dates: end: 20040401
  2. VIOXX [Suspect]
     Indication: ARTHRALGIA
     Route: 048
     Dates: start: 20040426, end: 20040526
  3. VALDECOXIB [Concomitant]
     Indication: ARTHRALGIA
     Route: 065
     Dates: start: 20040501

REACTIONS (1)
  - MYOCARDIAL INFARCTION [None]
